FAERS Safety Report 11049805 (Version 1)
Quarter: 2015Q2

REPORT INFORMATION
  Report Type: Spontaneous
  Country: US (occurrence: US)
  Receive Date: 20150420
  Receipt Date: 20150420
  Transmission Date: 20150821
  Serious: No
  Sender: FDA-Public Use
  Company Number: US-PURDUE-USA-2015-0120987

PATIENT
  Sex: Male

DRUGS (4)
  1. OXYCODONE HCL TABLETS (91-490) [Concomitant]
     Active Substance: OXYCODONE HYDROCHLORIDE
     Indication: BREAKTHROUGH PAIN
     Dosage: 15 MG, UNK
     Route: 048
  2. OXYCONTIN [Suspect]
     Active Substance: OXYCODONE HYDROCHLORIDE
     Dosage: 40 MG, UNK
     Route: 062
     Dates: start: 2013
  3. OXYCONTIN [Suspect]
     Active Substance: OXYCODONE HYDROCHLORIDE
     Indication: PAIN
     Dosage: 40 MG, UNK
     Route: 048
     Dates: start: 20150202
  4. OXYCONTIN [Suspect]
     Active Substance: OXYCODONE HYDROCHLORIDE
     Dosage: 20 MG, UNK
     Route: 048
     Dates: start: 2010

REACTIONS (4)
  - Pain [Unknown]
  - Drug ineffective [Unknown]
  - Hyperhidrosis [Unknown]
  - Middle insomnia [Unknown]

NARRATIVE: CASE EVENT DATE: 2010
